FAERS Safety Report 6417799-5 (Version None)
Quarter: 2009Q4

REPORT INFORMATION
  Report Type: 
  Country: None (occurrence: None)
  Receive Date: 20091027
  Receipt Date: 20091027
  Transmission Date: 20100525
  Serious: Yes (Life-Threatening)
  Sender: FDA-Public Use
  Company Number: None

PATIENT
  Age: 68 Year
  Sex: Male
  Weight: 85 kg

DRUGS (11)
  1. MEROPENEM [Suspect]
     Indication: MENINGITIS
     Dosage: 2GM IV Q 8
     Route: 042
     Dates: start: 20090804, end: 20090917
  2. DEXAMETHASONE [Concomitant]
  3. DOCUSATE [Concomitant]
  4. FILGRASTIM [Concomitant]
  5. INSULIN HIGH SS [Concomitant]
  6. KEPPRA [Concomitant]
  7. METOPROLOL [Concomitant]
  8. MULTI-VITAMIN [Concomitant]
  9. LANSOPROZOLE [Concomitant]
  10. ORAL VANCOMYCIN [Concomitant]
  11. WARFARIN SODIUM [Concomitant]

REACTIONS (1)
  - NEUTROPENIA [None]
